FAERS Safety Report 22081497 (Version 1)
Quarter: 2023Q1

REPORT INFORMATION
  Report Type: Spontaneous
  Country: US (occurrence: US)
  Receive Date: 20230310
  Receipt Date: 20230310
  Transmission Date: 20230417
  Serious: No
  Sender: FDA-Public Use
  Company Number: US-TORRENT-00012547

PATIENT
  Sex: Male

DRUGS (1)
  1. OLMESARTAN [Suspect]
     Active Substance: OLMESARTAN
     Indication: Blood pressure measurement
     Dosage: INCREASED TO 40 MG
     Route: 065

REACTIONS (1)
  - Therapy partial responder [Unknown]
